FAERS Safety Report 13890073 (Version 2)
Quarter: 2018Q4

REPORT INFORMATION
  Report Type: Spontaneous
  Country: US (occurrence: US)
  Receive Date: 20170822
  Receipt Date: 20181030
  Transmission Date: 20190204
  Serious: Yes (Other)
  Sender: FDA-Public Use
  Company Number: US-ACS-000729

PATIENT
  Age: 28 Year
  Sex: Female

DRUGS (2)
  1. DOXYCYCLINE. [Suspect]
     Active Substance: DOXYCYCLINE
     Indication: WEIL^S DISEASE
     Route: 051
  2. CEFTRIAXONE. [Suspect]
     Active Substance: CEFTRIAXONE
     Indication: WEIL^S DISEASE
     Route: 051

REACTIONS (1)
  - Jarisch-Herxheimer reaction [Recovered/Resolved]
